FAERS Safety Report 20671757 (Version 1)
Quarter: 2022Q2

REPORT INFORMATION
  Report Type: Spontaneous
  Country: NL (occurrence: NL)
  Receive Date: 20220405
  Receipt Date: 20220405
  Transmission Date: 20220721
  Serious: No
  Sender: FDA-Public Use
  Company Number: NL-ALKEM LABORATORIES LIMITED-NL-ALKEM-2022-00101

PATIENT
  Sex: Female
  Weight: 3.25 kg

DRUGS (5)
  1. SIROLIMUS [Suspect]
     Active Substance: SIROLIMUS
     Indication: Angiosarcoma
     Dosage: 0.1 MILLIGRAM (0.1 MG PER 48 HOURS)
     Route: 048
  2. SIROLIMUS [Suspect]
     Active Substance: SIROLIMUS
     Indication: Haemangioma-thrombocytopenia syndrome
     Dosage: 0.4 MILLIGRAM, BID (1.4 MG/M2 /24 HOURS)
     Route: 048
  3. COTRIMOXAZOLE [Concomitant]
     Active Substance: SULFAMETHOXAZOLE\TRIMETHOPRIM
     Indication: Antifungal prophylaxis
     Dosage: UNK
     Route: 065
  4. PREDNISONE [Concomitant]
     Active Substance: PREDNISONE
     Indication: Angiosarcoma
     Dosage: 1 MILLIGRAM/KILOGRAM, OD
  5. PREDNISONE [Concomitant]
     Active Substance: PREDNISONE
     Indication: Haemangioma-thrombocytopenia syndrome
     Dosage: 2 MILLIGRAM/KILOGRAM, OD

REACTIONS (1)
  - Platelet count increased [Recovered/Resolved]
